FAERS Safety Report 6276929-9 (Version None)
Quarter: 2009Q3

REPORT INFORMATION
  Report Type: 
  Country: None (occurrence: None)
  Receive Date: 20090722
  Receipt Date: 20081120
  Transmission Date: 20100115
  Serious: Yes (Hospitalization, Other)
  Sender: FDA-Public Use
  Company Number: US-BRISTOL-MYERS SQUIBB COMPANY-14378087

PATIENT
  Age: 74 Year
  Sex: Male
  Weight: 116 kg

DRUGS (17)
  1. COUMADIN [Suspect]
     Indication: ATRIAL FLUTTER
     Dosage: USUAL DOSE 5 MG 7 DAYS/WEEK TO 6 DAYS/WEEK WITH 1/2 TAB ON THE 7TH DAY
     Route: 048
  2. COUMADIN [Suspect]
     Indication: THROMBOSIS PROPHYLAXIS
     Dosage: USUAL DOSE 5 MG 7 DAYS/WEEK TO 6 DAYS/WEEK WITH 1/2 TAB ON THE 7TH DAY
     Route: 048
  3. PLAVIX [Suspect]
     Indication: TRANSIENT ISCHAEMIC ATTACK
     Dosage: STRENGTH 75 MM. FORM = TABS.
     Route: 048
     Dates: start: 20080101
  4. ASPIRIN [Suspect]
     Dosage: RECEIVED 3 TO 4 DAYS. FORMULATION = TABLET.
     Route: 048
     Dates: start: 20080101, end: 20080101
  5. NEURONTIN [Concomitant]
     Dosage: SINCE 1990'S
     Route: 065
     Dates: start: 19900101
  6. ALLOPURINOL [Concomitant]
     Dosage: SINCE 1990'S
     Route: 065
     Dates: start: 19900101
  7. LIPITOR [Concomitant]
     Dosage: 4-5 YEARS
     Route: 065
  8. HUMALOG [Concomitant]
     Dosage: INSULIN HUMALOG. 1 DOSAGEFORM = 50/50 (UNITS NOT MENTIONED)
     Route: 065
     Dates: start: 20060101
  9. SYNTHROID [Concomitant]
     Dosage: FOR ABOUT 5 YEARS
     Route: 065
     Dates: start: 20030101
  10. IMDUR [Concomitant]
     Dosage: FOR ABOUT 5 YEARS
     Route: 065
     Dates: start: 20030101
  11. COREG [Concomitant]
     Dosage: THE LEAST AMOUNT FOR ABOUT 5 YEARS
     Route: 065
     Dates: start: 20030101
  12. LEXAPRO [Concomitant]
     Route: 065
     Dates: start: 20070101
  13. NORTRIPTYLINE HCL [Concomitant]
     Dosage: AT LEAST 5 YEARS
     Route: 065
     Dates: start: 20030101
  14. FUROSEMIDE [Concomitant]
     Dosage: STARTED 1980S, THIS DOSE FOR 3 YEARS
     Route: 065
     Dates: start: 19800101
  15. FOLIC ACID [Concomitant]
     Route: 065
     Dates: start: 20030101
  16. NEXIUM [Concomitant]
     Dosage: AT LEAST 10 YEARS
     Route: 065
     Dates: start: 19980101
  17. SPIRONOLACTONE [Concomitant]
     Indication: OEDEMA PERIPHERAL
     Route: 065

REACTIONS (9)
  - CONTUSION [None]
  - EPISTAXIS [None]
  - FALL [None]
  - GENITAL SWELLING [None]
  - HAEMOGLOBIN DECREASED [None]
  - OEDEMA PERIPHERAL [None]
  - SKIN DISCOLOURATION [None]
  - SYNCOPE [None]
  - TRANSIENT ISCHAEMIC ATTACK [None]
